FAERS Safety Report 9089482 (Version 1)
Quarter: 2013Q1

REPORT INFORMATION
  Report Type: Spontaneous
  Country: PH (occurrence: PH)
  Receive Date: 20130201
  Receipt Date: 20130201
  Transmission Date: 20140127
  Serious: Yes (Death, Hospitalization, Other)
  Sender: FDA-Public Use
  Company Number: PH-BAXTER-2013BAX003197

PATIENT
  Sex: Male

DRUGS (1)
  1. DIANEAL PD2 WITH 1.5% DEXTROSE [Suspect]
     Indication: PERITONEAL DIALYSIS
     Route: 033
     Dates: start: 20120909

REACTIONS (5)
  - Renal failure chronic [Fatal]
  - Diabetic nephropathy [Fatal]
  - Hypertension [Fatal]
  - Loss of consciousness [Unknown]
  - Dyspnoea [Unknown]
